FAERS Safety Report 15037838 (Version 3)
Quarter: 2018Q3

REPORT INFORMATION
  Report Type: Report from Study
  Country: US (occurrence: US)
  Receive Date: 20180620
  Receipt Date: 20180712
  Transmission Date: 20181010
  Serious: Yes (Life-Threatening, Hospitalization)
  Sender: FDA-Public Use
  Company Number: US-ACTELION-A-US2017-151751

PATIENT
  Age: 36 Year
  Sex: Female
  Weight: 63.49 kg

DRUGS (8)
  1. VELETRI [Suspect]
     Active Substance: EPOPROSTENOL
     Dosage: 39 NG/KG, PER MIN
     Route: 042
  2. OPSUMIT [Suspect]
     Active Substance: MACITENTAN
     Indication: PULMONARY ARTERIAL HYPERTENSION
     Dosage: 10 MG, QD
     Route: 048
     Dates: start: 201410, end: 20180528
  3. ELIQUIS [Concomitant]
     Active Substance: APIXABAN
  4. VELETRI [Suspect]
     Active Substance: EPOPROSTENOL
     Dosage: 56 NG/KG, PER MIN
     Route: 042
     Dates: end: 20180528
  5. SILDENAFIL. [Concomitant]
     Active Substance: SILDENAFIL
     Indication: PULMONARY ARTERIAL HYPERTENSION
     Dosage: UNK
  6. VELETRI [Suspect]
     Active Substance: EPOPROSTENOL
     Dosage: UNK
     Route: 042
     Dates: start: 201703
  7. ADCIRCA [Concomitant]
     Active Substance: TADALAFIL
  8. VELETRI [Suspect]
     Active Substance: EPOPROSTENOL
     Indication: PULMONARY ARTERIAL HYPERTENSION
     Dosage: 37 NG/KG, PER MIN
     Route: 042

REACTIONS (18)
  - Condition aggravated [Unknown]
  - Nasal discomfort [Unknown]
  - Cholelithiasis [Unknown]
  - Sinus disorder [Unknown]
  - Dyspnoea [Unknown]
  - Chest pain [Unknown]
  - Rhinorrhoea [Unknown]
  - Pain in jaw [Unknown]
  - Nasopharyngitis [Unknown]
  - Lung transplant [Recovered/Resolved]
  - Flushing [Unknown]
  - Headache [Unknown]
  - Exercise tolerance decreased [Unknown]
  - Respiratory failure [Unknown]
  - Swelling [Unknown]
  - Hypoxia [Unknown]
  - Lacrimation increased [Unknown]
  - Rash [Unknown]

NARRATIVE: CASE EVENT DATE: 20170419
